FAERS Safety Report 14265469 (Version 1)
Quarter: 2017Q4

REPORT INFORMATION
  Report Type: Spontaneous
  Country: US (occurrence: US)
  Receive Date: 20171208
  Receipt Date: 20171208
  Transmission Date: 20180321
  Serious: Yes (Other)
  Sender: FDA-Public Use
  Company Number: US-VALIDUS PHARMACEUTICALS LLC-US-2017VAL001633

PATIENT
  Sex: Male

DRUGS (2)
  1. CALCITRIOL. [Suspect]
     Active Substance: CALCITRIOL
     Indication: OLIGOASTHENOTERATOZOOSPERMIA
     Dosage: 0.25 ?G, BID
     Route: 065
  2. ISOTRETINOIN. [Suspect]
     Active Substance: ISOTRETINOIN
     Indication: OLIGOASTHENOTERATOZOOSPERMIA
     Dosage: 20 MG, BID
     Route: 048

REACTIONS (1)
  - Chikungunya virus infection [Recovered/Resolved]
